FAERS Safety Report 16712022 (Version 1)
Quarter: 2019Q3

REPORT INFORMATION
  Report Type: Spontaneous
  Country: US (occurrence: US)
  Receive Date: 20190816
  Receipt Date: 20190816
  Transmission Date: 20191004
  Serious: No
  Sender: FDA-Public Use
  Company Number: US-TEVA-2019-US-1092567

PATIENT
  Sex: Female

DRUGS (1)
  1. CAPECITABINE. [Suspect]
     Active Substance: CAPECITABINE
     Indication: BREAST CANCER FEMALE
     Dosage: TID TWICE A DAY FOR 14 DAYS AND 7 DAYS OFF
     Route: 065
     Dates: start: 20190506

REACTIONS (2)
  - Skin discolouration [Unknown]
  - Diarrhoea [Unknown]
